FAERS Safety Report 8155071-6 (Version None)
Quarter: 2012Q1

REPORT INFORMATION
  Report Type: 
  Country: None (occurrence: None)
  Receive Date: 20120221
  Receipt Date: 20120217
  Transmission Date: 20120608
  Serious: Yes (Other)
  Sender: FDA-Public Use
  Company Number: US-PFIZER INC-2012043734

PATIENT
  Sex: Female
  Weight: 77.551 kg

DRUGS (7)
  1. NEURONTIN [Concomitant]
     Indication: PAIN IN EXTREMITY
     Dosage: UNK
  2. SYNTHROID [Concomitant]
     Indication: THYROID DISORDER
     Dosage: UNK
  3. LOPERAMIDE HYDROCHLORIDE [Concomitant]
     Indication: DIARRHOEA
     Dosage: 4 TABLETS, 2X/DAY
  4. LORATADINE AND PSEUDOEPHEDRINE SULFATE [Concomitant]
     Indication: HYPERSENSITIVITY
     Dosage: UNK, DAILY
  5. PRISTIQ [Suspect]
     Indication: ANXIETY
     Dosage: 50 MG, DAILY
  6. SIMVASTATIN [Concomitant]
     Indication: BLOOD CHOLESTEROL ABNORMAL
     Dosage: UNK
  7. VICODIN [Concomitant]
     Indication: BACK PAIN
     Dosage: 500/5 MG, AS NEEDED

REACTIONS (3)
  - TINNITUS [None]
  - MALAISE [None]
  - DIZZINESS [None]
